FAERS Safety Report 9869612 (Version 2)
Quarter: 2014Q1

REPORT INFORMATION
  Report Type: Spontaneous
  Country: US (occurrence: US)
  Receive Date: 20140205
  Receipt Date: 20140205
  Transmission Date: 20141002
  Serious: Yes (Hospitalization, Disabling)
  Sender: FDA-Public Use
  Company Number: US-ASTRAZENECA-2014SE06409

PATIENT
  Sex: Female

DRUGS (2)
  1. PRILOSEC [Suspect]
     Indication: DYSPEPSIA
     Route: 048
  2. PRILOSEC OTC [Suspect]
     Indication: DYSPEPSIA
     Route: 048

REACTIONS (12)
  - Suicidal ideation [Unknown]
  - Asthenia [Unknown]
  - Myalgia [Unknown]
  - Diarrhoea [Unknown]
  - Mental disorder [Unknown]
  - Heart rate increased [Unknown]
  - Chest pain [Unknown]
  - Arthritis [Unknown]
  - Hearing impaired [Unknown]
  - Abdominal discomfort [Unknown]
  - Malaise [Unknown]
  - Drug dose omission [Unknown]
